FAERS Safety Report 21888054 (Version 3)
Quarter: 2023Q2

REPORT INFORMATION
  Report Type: Report from Study
  Country: US (occurrence: None)
  Receive Date: 20230120
  Receipt Date: 20230403
  Transmission Date: 20230721
  Serious: Yes (Hospitalization)
  Sender: FDA-Public Use
  Company Number: US-ROCHE-3266721

PATIENT
  Age: 61 Year
  Sex: Male
  Weight: 65 kg

DRUGS (24)
  1. ATEZOLIZUMAB [Suspect]
     Active Substance: ATEZOLIZUMAB
     Indication: Hormone-refractory prostate cancer
     Route: 041
     Dates: start: 20220427
  2. ALBUTEROL [Concomitant]
     Active Substance: ALBUTEROL
  3. IBUPROFEN [Concomitant]
     Active Substance: IBUPROFEN
  4. LORATADINE [Concomitant]
     Active Substance: LORATADINE
  5. METOPROLOL [Concomitant]
     Active Substance: METOPROLOL
  6. LISINOPRIL [Concomitant]
     Active Substance: LISINOPRIL
  7. SILODOSIN [Concomitant]
     Active Substance: SILODOSIN
  8. ACETAMINOPHEN [Concomitant]
     Active Substance: ACETAMINOPHEN
  9. CALCIUM CARBONATE [Concomitant]
     Active Substance: CALCIUM CARBONATE
  10. CALCIUM\ERGOCALCIFEROL [Concomitant]
     Active Substance: CALCIUM\ERGOCALCIFEROL
  11. VITAMIN B12 [Concomitant]
     Active Substance: CYANOCOBALAMIN
  12. CORTISONE [Concomitant]
     Active Substance: CORTISONE
  13. MELATONIN [Concomitant]
     Active Substance: MELATONIN
  14. LEVOTHYROXINE [Concomitant]
     Active Substance: LEVOTHYROXINE
  15. PROCHLORPERAZINE [Concomitant]
     Active Substance: PROCHLORPERAZINE
  16. TRIAMCINOLONE [Concomitant]
     Active Substance: TRIAMCINOLONE
  17. DIPHENHYDRAMINE [Concomitant]
     Active Substance: DIPHENHYDRAMINE
  18. DIPHENHYDRAMINE HYDROCHLORIDE\LIDOCAINE HYDROCHLORIDE\NYSTATIN [Concomitant]
     Active Substance: DIPHENHYDRAMINE HYDROCHLORIDE\LIDOCAINE HYDROCHLORIDE\NYSTATIN
  19. OMEPRAZOLE [Concomitant]
     Active Substance: OMEPRAZOLE
  20. IMODIUM [Concomitant]
     Active Substance: LOPERAMIDE HYDROCHLORIDE
  21. OXYCODONE [Concomitant]
     Active Substance: OXYCODONE
  22. CEFTRIAXONE [Concomitant]
     Active Substance: CEFTRIAXONE
  23. VANCOMYCIN [Concomitant]
     Active Substance: VANCOMYCIN
  24. HYDROMORPHONE HCL [Concomitant]
     Active Substance: HYDROMORPHONE HYDROCHLORIDE

REACTIONS (1)
  - Arthritis reactive [Recovered/Resolved with Sequelae]

NARRATIVE: CASE EVENT DATE: 20230110
